FAERS Safety Report 6857159-6 (Version None)
Quarter: 2010Q3

REPORT INFORMATION
  Report Type: 
  Country: None (occurrence: None)
  Receive Date: 20100719
  Receipt Date: 20100715
  Transmission Date: 20110219
  Serious: Yes (Death)
  Sender: FDA-Public Use
  Company Number: CA-B.I. PHARMACEUTICALS,INC./RIDGEFIELD-2010-CN-00386CN

PATIENT
  Sex: Male

DRUGS (1)
  1. CATAPRES [Suspect]
     Indication: PAIN MANAGEMENT

REACTIONS (1)
  - MALIGNANT NEOPLASM PROGRESSION [None]
